FAERS Safety Report 18324971 (Version 2)
Quarter: 2020Q4

REPORT INFORMATION
  Report Type: Spontaneous
  Country: US (occurrence: US)
  Receive Date: 20200929
  Receipt Date: 20201007
  Transmission Date: 20210113
  Serious: No
  Sender: FDA-Public Use
  Company Number: US-PFIZER INC-2020371943

PATIENT
  Age: 72 Year
  Sex: Female
  Weight: 59.87 kg

DRUGS (3)
  1. LYRICA [Suspect]
     Active Substance: PREGABALIN
     Indication: BACK DISORDER
     Dosage: 75 MG, 1X/DAY, (NIGHTLY)
     Route: 048
  2. LYRICA [Suspect]
     Active Substance: PREGABALIN
     Dosage: 300 MG
  3. LYRICA [Suspect]
     Active Substance: PREGABALIN
     Dosage: 75 MG, 2X/DAY
     Route: 048

REACTIONS (5)
  - Dizziness [Unknown]
  - Motion sickness [Unknown]
  - Drug ineffective [Unknown]
  - Intentional product misuse [Unknown]
  - Vomiting [Unknown]
